FAERS Safety Report 4629294-4 (Version None)
Quarter: 2005Q2

REPORT INFORMATION
  Report Type: 
  Country: None (occurrence: None)
  Receive Date: 20050407
  Receipt Date: 20050314
  Transmission Date: 20051028
  Serious: Yes (Disabling)
  Sender: FDA-Public Use
  Company Number: JP-MERCK-0503USA02487

PATIENT
  Age: 66 Year
  Sex: Female

DRUGS (6)
  1. FOSAMAX [Suspect]
     Indication: BONE LESION
     Route: 041
     Dates: start: 20000101
  2. ENDOXAN [Concomitant]
     Indication: BREAST CANCER
     Route: 065
  3. FARMORUBICIN [Concomitant]
     Indication: BREAST CANCER
     Route: 065
  4. UFT [Concomitant]
     Indication: BREAST CANCER
     Route: 065
  5. [THERAPY UNSPECIFIED] [Concomitant]
     Route: 065
  6. AREDIA [Concomitant]
     Route: 065

REACTIONS (1)
  - OSTEONECROSIS [None]
